FAERS Safety Report 23214461 (Version 2)
Quarter: 2023Q4

REPORT INFORMATION
  Report Type: Report from Study
  Country: IT (occurrence: IT)
  Receive Date: 20231121
  Receipt Date: 20231128
  Transmission Date: 20240110
  Serious: Yes (Other)
  Sender: FDA-Public Use
  Company Number: IT-Vifor Pharma-VIT-2023-07674

PATIENT
  Age: 85 Year
  Sex: Male
  Weight: 60 kg

DRUGS (2)
  1. KORSUVA [Suspect]
     Active Substance: DIFELIKEFALIN ACETATE
     Indication: Uraemic pruritus
     Dosage: 1.50 MCG/1 ML 3 TIMES/WEEK 0.6 ML
     Route: 042
     Dates: start: 20230802, end: 202310
  2. INSULIN NOS [Concomitant]
     Active Substance: INSULIN NOS
     Indication: Type 2 diabetes mellitus

REACTIONS (6)
  - Confusional state [Recovered/Resolved]
  - Confusional state [Recovered/Resolved]
  - Confusional state [Recovered/Resolved]
  - Disorientation [Recovered/Resolved]
  - Disorientation [Recovered/Resolved]
  - Disorientation [Unknown]

NARRATIVE: CASE EVENT DATE: 20231001
